FAERS Safety Report 13660639 (Version 4)
Quarter: 2020Q1

REPORT INFORMATION
  Report Type: Report from Study
  Country: US (occurrence: US)
  Receive Date: 20170616
  Receipt Date: 20200316
  Transmission Date: 20200409
  Serious: Yes (Hospitalization)
  Sender: FDA-Public Use
  Company Number: US-009507513-1705USA007733

PATIENT
  Age: 76 Year
  Sex: Male
  Weight: 80.1 kg

DRUGS (11)
  1. ONDANSETRON [Concomitant]
     Active Substance: ONDANSETRON
     Indication: NAUSEA
     Dosage: TOTAL DAILY DOSE: 4 MG, PRN
     Route: 048
     Dates: start: 20161028
  2. FAMOTIDINE. [Concomitant]
     Active Substance: FAMOTIDINE
     Indication: NAUSEA
     Dosage: TOTAL DAILY DOSE: 40 MG
     Route: 048
     Dates: start: 20161028
  3. OXYCODONE [Concomitant]
     Active Substance: OXYCODONE
     Indication: BACK PAIN
  4. OXYCODONE [Concomitant]
     Active Substance: OXYCODONE
     Indication: ABDOMINAL PAIN
  5. PEMBROLIZUMAB. [Suspect]
     Active Substance: PEMBROLIZUMAB
     Dosage: 200 MG, Q3W
     Route: 042
     Dates: start: 20170420, end: 20170420
  6. GABAPENTIN. [Concomitant]
     Active Substance: GABAPENTIN
     Indication: PERIPHERAL SENSORY NEUROPATHY
     Dosage: 800 MG, BID
     Route: 048
     Dates: start: 201412
  7. GLYBURIDE. [Suspect]
     Active Substance: GLYBURIDE
     Indication: HYPERGLYCAEMIA
     Dosage: 5 MG, QD, FORMULATION: PILL
     Route: 048
     Dates: start: 20170523, end: 20170527
  8. LOVASTATIN. [Concomitant]
     Active Substance: LOVASTATIN
     Indication: HYPERLIPIDAEMIA
     Dosage: 20 MG, QD
     Route: 048
     Dates: start: 201412
  9. OXYCODONE [Concomitant]
     Active Substance: OXYCODONE
     Indication: FLANK PAIN
     Dosage: TOTAL DAILY DOSE: 5 MG, PRN
     Route: 048
     Dates: start: 20161012
  10. PEMBROLIZUMAB. [Suspect]
     Active Substance: PEMBROLIZUMAB
     Indication: HEPATOCELLULAR CARCINOMA
     Dosage: 200 MG, Q3W
     Route: 042
     Dates: start: 20161012, end: 20170330
  11. THICK IT ORIGINAL THICKENER [Concomitant]
     Indication: DYSPHAGIA
     Dosage: TOTAL DAILY DOSE: 3 TABLESPOONS (TSP), PRN
     Route: 048
     Dates: start: 20170207

REACTIONS (4)
  - Hypoglycaemia [Recovered/Resolved]
  - Aspartate aminotransferase increased [Recovered/Resolved]
  - Blood bilirubin increased [Recovered/Resolved]
  - Alanine aminotransferase increased [Recovered/Resolved]

NARRATIVE: CASE EVENT DATE: 20170511
